FAERS Safety Report 10435301 (Version 1)
Quarter: 2014Q3

REPORT INFORMATION
  Report Type: Report from Study
  Country: US (occurrence: US)
  Receive Date: 20140908
  Receipt Date: 20140908
  Transmission Date: 20150326
  Serious: Yes (Other)
  Sender: FDA-Public Use
  Company Number: US-ROCHE-1458384

PATIENT
  Sex: Male
  Weight: 24 kg

DRUGS (1)
  1. NUTROPIN AQ [Suspect]
     Active Substance: SOMATROPIN
     Indication: GROWTH HORMONE DEFICIENCY
     Dosage: QHS (EVERY NIGHT AT BEDTIME)
     Route: 058

REACTIONS (4)
  - Insulin-like growth factor increased [Unknown]
  - Headache [Unknown]
  - Keratosis pilaris [Unknown]
  - Arthralgia [Unknown]
